FAERS Safety Report 11990895 (Version 2)
Quarter: 2016Q1

REPORT INFORMATION
  Report Type: Report from Study
  Country: TW (occurrence: TW)
  Receive Date: 20160202
  Receipt Date: 20160225
  Transmission Date: 20160526
  Serious: Yes (Other)
  Sender: FDA-Public Use
  Company Number: TW-ABBVIE-16K-153-1531009-00

PATIENT
  Age: 53 Year
  Sex: Female
  Weight: 50 kg

DRUGS (3)
  1. PREDNISOLONE. [Concomitant]
     Active Substance: PREDNISOLONE
     Indication: RHEUMATOID ARTHRITIS
     Route: 048
     Dates: start: 20050205
  2. HUMIRA [Suspect]
     Active Substance: ADALIMUMAB
     Indication: RHEUMATOID ARTHRITIS
     Route: 058
     Dates: start: 20080602, end: 20151230
  3. METHOTREXATE [Concomitant]
     Active Substance: METHOTREXATE
     Indication: RHEUMATOID ARTHRITIS
     Route: 048
     Dates: start: 20050205

REACTIONS (8)
  - Arthritis [Unknown]
  - Osteoporosis [Unknown]
  - Osteoarthritis [Unknown]
  - Bronchiectasis [Unknown]
  - Atypical mycobacterial infection [Unknown]
  - Cough [Not Recovered/Not Resolved]
  - Pulmonary tuberculosis [Not Recovered/Not Resolved]
  - Mycobacterium tuberculosis complex test positive [Not Recovered/Not Resolved]

NARRATIVE: CASE EVENT DATE: 2015
